FAERS Safety Report 22932965 (Version 3)
Quarter: 2024Q1

REPORT INFORMATION
  Report Type: Spontaneous
  Country: US (occurrence: US)
  Receive Date: 20230912
  Receipt Date: 20240220
  Transmission Date: 20240409
  Serious: No
  Sender: FDA-Public Use
  Company Number: US-BRISTOL-MYERS SQUIBB COMPANY-2023-128211

PATIENT
  Age: 78 Year
  Sex: Female
  Weight: 68.49 kg

DRUGS (2)
  1. REVLIMID [Suspect]
     Active Substance: LENALIDOMIDE
     Indication: Plasma cell myeloma
     Route: 048
  2. REVLIMID [Suspect]
     Active Substance: LENALIDOMIDE
     Dosage: FREQUENCY: 2WKSON,1WKOFF
     Route: 048

REACTIONS (4)
  - Nausea [Unknown]
  - Haemoglobin decreased [Unknown]
  - Off label use [Unknown]
  - Alopecia [Unknown]
